FAERS Safety Report 15112201 (Version 1)
Quarter: 2018Q3

REPORT INFORMATION
  Report Type: Spontaneous
  Country: US (occurrence: US)
  Receive Date: 20180705
  Receipt Date: 20180705
  Transmission Date: 20181010
  Serious: Yes (Hospitalization, Other)
  Sender: FDA-Public Use
  Company Number: US-TEVA-2018-US-918954

PATIENT
  Age: 65 Year
  Sex: Female

DRUGS (8)
  1. NILOTINIB [Suspect]
     Active Substance: NILOTINIB
     Indication: ACUTE MYELOID LEUKAEMIA
     Dosage: DAYS 4 TO 14; AS PER PHASE II CLINICAL TRIAL
     Route: 065
  2. ASPIRIN. [Concomitant]
     Active Substance: ASPIRIN
     Indication: ESSENTIAL THROMBOCYTHAEMIA
     Route: 065
  3. NAPROXEN. [Concomitant]
     Active Substance: NAPROXEN
     Indication: OSTEOARTHRITIS
     Dosage: AS NEEDED
     Route: 065
  4. PANTOPRAZOLE [Concomitant]
     Active Substance: PANTOPRAZOLE
     Indication: GASTROOESOPHAGEAL REFLUX DISEASE
     Route: 065
  5. HYDROXYUREA. [Suspect]
     Active Substance: HYDROXYUREA
     Indication: ESSENTIAL THROMBOCYTHAEMIA
     Route: 065
  6. DAUNORUBICIN [Suspect]
     Active Substance: DAUNORUBICIN
     Indication: ACUTE MYELOID LEUKAEMIA
     Dosage: 3+7 PROTOCOL; INDUCTION CHEMOTHERAPY
     Route: 065
  7. CYTARABINE. [Suspect]
     Active Substance: CYTARABINE
     Indication: ACUTE MYELOID LEUKAEMIA
     Dosage: 3+7 PROTOCOL; INDUCTION CHEMOTHERAPY
     Route: 065
  8. HYDROCHLOROTHIAZIDE. [Concomitant]
     Active Substance: HYDROCHLOROTHIAZIDE
     Indication: HYPERTENSION
     Route: 065

REACTIONS (5)
  - Transformation to acute myeloid leukaemia [Not Recovered/Not Resolved]
  - Haematochezia [Recovered/Resolved]
  - Intestinal haematoma [Recovered/Resolved]
  - Thrombocytopenia [Recovering/Resolving]
  - Intestinal dilatation [Unknown]
